FAERS Safety Report 25914575 (Version 1)
Quarter: 2025Q4

REPORT INFORMATION
  Report Type: Report from Study
  Country: US (occurrence: US)
  Receive Date: 20251013
  Receipt Date: 20251013
  Transmission Date: 20260117
  Serious: Yes (Hospitalization, Other)
  Sender: ALEXION PHARMACEUTICALS
  Company Number: A202300573

PATIENT
  Age: 45 Year
  Sex: Female

DRUGS (1)
  1. STRENSIQ [Suspect]
     Active Substance: ASFOTASE ALFA
     Indication: Phosphorus metabolism disorder
     Dosage: 200 MILLIGRAM, TIW

REACTIONS (8)
  - Balance disorder [Unknown]
  - Myasthenia gravis [Unknown]
  - Dizziness [Unknown]
  - Cognitive disorder [Unknown]
  - Speech disorder [Unknown]
  - Fatigue [Unknown]
  - Migraine [Unknown]
  - Bone pain [Unknown]
